FAERS Safety Report 5240039-X (Version None)
Quarter: 2007Q1

REPORT INFORMATION
  Report Type: 
  Country: None (occurrence: None)
  Receive Date: 20070216
  Receipt Date: 20070206
  Transmission Date: 20070707
  Serious: Yes (Death)
  Sender: FDA-Public Use
  Company Number: JP-PFIZER INC-2007009211

PATIENT
  Sex: Male

DRUGS (3)
  1. ZYVOX [Suspect]
     Indication: PNEUMONIA STAPHYLOCOCCAL
     Dosage: DAILY DOSE:1200MG
     Route: 042
     Dates: start: 20070110, end: 20070119
  2. ZYVOX [Suspect]
     Indication: PNEUMONIA STAPHYLOCOCCAL
     Dosage: DAILY DOSE:1200MG
     Route: 048
     Dates: start: 20070120, end: 20070122
  3. MICAFUNGIN [Concomitant]
     Route: 042
     Dates: start: 20061222, end: 20070131

REACTIONS (2)
  - PLATELET COUNT DECREASED [None]
  - RESPIRATORY FAILURE [None]
